FAERS Safety Report 10931840 (Version 1)
Quarter: 2015Q1

REPORT INFORMATION
  Report Type: Report from Study
  Country: US (occurrence: US)
  Receive Date: 20150319
  Receipt Date: 20150319
  Transmission Date: 20150721
  Serious: No
  Sender: FDA-Public Use
  Company Number: US-GLAXOSMITHKLINE-US2015GSK032939

PATIENT
  Sex: Male

DRUGS (1)
  1. FLUTICASONE FUROATE + VILANTEROL TRIFENATATE INHALATION POWDER [Suspect]
     Active Substance: FLUTICASONE FUROATE\VILANTEROL TRIFENATATE
     Indication: ASTHMA
     Dosage: UNK, U
     Route: 065

REACTIONS (1)
  - Off label use [Unknown]
